FAERS Safety Report 5386308-4 (Version None)
Quarter: 2007Q3

REPORT INFORMATION
  Report Type: 
  Country: None (occurrence: None)
  Receive Date: 20070710
  Receipt Date: 20070625
  Transmission Date: 20080115
  Serious: Yes (Life-Threatening, Hospitalization)
  Sender: FDA-Public Use
  Company Number: US020434

PATIENT
  Age: 19 Year
  Sex: Male

DRUGS (1)
  1. ACTIQ [Suspect]
     Dosage: 200 UG BUCCAL
     Route: 002
     Dates: start: 20051222, end: 20051222

REACTIONS (12)
  - ACIDOSIS [None]
  - AGITATION [None]
  - ALANINE AMINOTRANSFERASE INCREASED [None]
  - ASPARTATE AMINOTRANSFERASE INCREASED [None]
  - BLOOD CREATINE PHOSPHOKINASE INCREASED [None]
  - COMA [None]
  - CONVULSION [None]
  - CYANOSIS [None]
  - HYPOTENSION [None]
  - INCORRECT DOSE ADMINISTERED [None]
  - IRRITABILITY [None]
  - RESPIRATORY DEPRESSION [None]
